FAERS Safety Report 7784350-7 (Version None)
Quarter: 2011Q3

REPORT INFORMATION
  Report Type: 
  Country: None (occurrence: None)
  Receive Date: 20110928
  Receipt Date: 20110920
  Transmission Date: 20111222
  Serious: Yes (Hospitalization, Other)
  Sender: FDA-Public Use
  Company Number: PHHY2011US24053

PATIENT
  Sex: Male
  Weight: 76 kg

DRUGS (21)
  1. ASPIRIN [Concomitant]
     Dosage: PRN
     Dates: start: 20030803
  2. HYPE- SAL [Concomitant]
     Dosage: NEBULISATION, DAILY
     Dates: start: 20091215
  3. VITAMIN D [Concomitant]
     Dosage: 200 IU, BID
     Dates: start: 20080722
  4. FLUTICASONE PROPIONATE/SALMETEROL [Concomitant]
     Dosage: 1 DF, UNK
     Dates: start: 20070911
  5. TOBI [Suspect]
     Indication: CYSTIC FIBROSIS
     Dosage: 300 MG, BID VIA NEBULIZER IN A CYCLE OF 28 DAYS ON AND 28 DAYS OFF
     Dates: start: 20100427
  6. PANCREASE [Concomitant]
     Dosage: 21,000, 7 CAPS WITH MEALS AND 4 WITH MEALS
     Route: 048
     Dates: start: 20110815
  7. CAYSTON [Concomitant]
     Dosage: 75 MG, NEB, TID FOR 28 DAYS QOMONTH
     Dates: start: 20100507
  8. ANDROGEL [Concomitant]
     Dosage: 1 %, 5 TIMES A WEEK
     Dates: start: 20080422
  9. CARDIZEM [Concomitant]
     Dosage: 360 MG, QD
     Route: 048
     Dates: start: 20080122
  10. VITAMIN B-12 [Concomitant]
     Dosage: 500 UG, QD
     Dates: start: 20081202
  11. CALCIUM CARBONATE [Concomitant]
     Dosage: 500 UNK, BID
     Dates: start: 20080722
  12. PULMOZYME [Concomitant]
     Dosage: 2.5 MG, DAILY
  13. PAROXETINE HCL [Concomitant]
     Dosage: 30 MG, QD
     Route: 048
     Dates: start: 20070911
  14. BENICAR [Concomitant]
     Dosage: 20 MG, BID
     Route: 048
     Dates: start: 20080122
  15. AZTREONAM [Concomitant]
     Dosage: 75 MG, TID
  16. ALBUTEROL [Concomitant]
     Dosage: 2-3 TIMES/DAY AS NEEDED
     Dates: start: 20081014
  17. ADVAIR DISKUS 100/50 [Concomitant]
  18. VITAMIN D [Concomitant]
     Dosage: 2000 IU, DAILY
     Dates: start: 20090616
  19. AZITHROMYCIN [Concomitant]
     Dosage: 250 MG, DAILY
     Route: 048
     Dates: start: 20070911
  20. PULMOZYME [Concomitant]
     Dosage: 2.5 MG, QD
     Dates: start: 20070911
  21. M.V.I. [Concomitant]
     Dosage: UNK
     Dates: start: 20080122

REACTIONS (6)
  - UPPER RESPIRATORY TRACT INFECTION [None]
  - LUNG INFECTION [None]
  - INFECTIVE PULMONARY EXACERBATION OF CYSTIC FIBROSIS [None]
  - PNEUMONIA [None]
  - LUNG CONSOLIDATION [None]
  - EAR INFECTION [None]
